FAERS Safety Report 6773999-6 (Version None)
Quarter: 2010Q2

REPORT INFORMATION
  Report Type: 
  Country: None (occurrence: None)
  Receive Date: 20100617
  Receipt Date: 20100610
  Transmission Date: 20101027
  Serious: Yes (Hospitalization)
  Sender: FDA-Public Use
  Company Number: FR-WYE-G06253510

PATIENT
  Sex: Female

DRUGS (12)
  1. TAZOCILLINE [Suspect]
     Dosage: UNKNOWN
     Route: 042
     Dates: start: 20100414, end: 20100424
  2. PREVISCAN [Concomitant]
     Dosage: UNKNOWN
  3. IPRATROPIUM BROMIDE [Concomitant]
     Dosage: UNKNOWN
  4. SALBUTAMOL [Concomitant]
     Dosage: UNKNOWN
  5. HEMIGOXINE NATIVELLE [Concomitant]
     Dosage: UNKNOWN
  6. DALACIN [Suspect]
     Dosage: UNKNOWN
     Route: 048
     Dates: start: 20100414, end: 20100424
  7. GENTAMICIN [Suspect]
     Dosage: UNKNOWN
     Route: 042
     Dates: start: 20100414, end: 20100416
  8. LASIX [Concomitant]
     Dosage: UNKNOWN
  9. ALDACTONE [Concomitant]
     Dosage: UNKNOWN
  10. DIFFU K [Concomitant]
     Dosage: UNKNOWN
  11. UMULINE [Concomitant]
     Dosage: UNKNOWN
  12. DOLIPRANE [Concomitant]
     Dosage: UNKNOWN

REACTIONS (2)
  - RASH ERYTHEMATOUS [None]
  - TOXIC SKIN ERUPTION [None]
